FAERS Safety Report 25303708 (Version 1)
Quarter: 2025Q2

REPORT INFORMATION
  Report Type: Spontaneous
  Country: NL (occurrence: NL)
  Receive Date: 20250513
  Receipt Date: 20250513
  Transmission Date: 20250717
  Serious: Yes (Life-Threatening, Hospitalization)
  Sender: AMGEN
  Company Number: None

PATIENT
  Age: 50 Year
  Sex: Male
  Weight: 66 kg

DRUGS (3)
  1. ADALIMUMAB [Suspect]
     Active Substance: ADALIMUMAB
     Indication: Rheumatoid arthritis
     Dosage: 40 MILLIGRAM, Q2WK (1X PER 2 WEEKS 0,4ML = 40MG)
     Route: 065
     Dates: start: 20240729
  2. PERINDOPRIL [Concomitant]
     Active Substance: PERINDOPRIL
     Indication: Hypertension
     Dosage: 8 MILLIGRAM, QD (1X PER DAY 1 TABLET)
     Route: 048
     Dates: start: 20101203, end: 20250422
  3. PERINDOPRIL [Concomitant]
     Active Substance: PERINDOPRIL
     Indication: Ischaemic heart disease prophylaxis

REACTIONS (4)
  - Swelling [Recovered/Resolved]
  - Lip swelling [Recovered/Resolved]
  - Swollen tongue [Recovered/Resolved]
  - Drug intolerance [Recovered/Resolved]
